FAERS Safety Report 18746127 (Version 1)
Quarter: 2021Q1

REPORT INFORMATION
  Report Type: Report from Study
  Country: BE (occurrence: BE)
  Receive Date: 20210115
  Receipt Date: 20210115
  Transmission Date: 20210419
  Serious: Yes (Death, Life-Threatening, Hospitalization)
  Sender: FDA-Public Use
  Company Number: BE-TEVA-2021-BE-1869556

PATIENT
  Age: 41 Year
  Sex: Male

DRUGS (2)
  1. DISULFIRAM. [Suspect]
     Active Substance: DISULFIRAM
     Indication: OVERDOSE
     Route: 065
  2. DIAZEPAM. [Suspect]
     Active Substance: DIAZEPAM
     Indication: OVERDOSE
     Route: 065

REACTIONS (8)
  - Aspiration [Recovering/Resolving]
  - Overdose [Unknown]
  - Nervous system disorder [Unknown]
  - Renal failure [Recovering/Resolving]
  - Acidosis [Unknown]
  - Circulatory collapse [Recovering/Resolving]
  - Alcohol intolerance [Fatal]
  - Pneumonia [Unknown]
